FAERS Safety Report 23933354 (Version 1)
Quarter: 2024Q2

REPORT INFORMATION
  Report Type: Spontaneous
  Country: US (occurrence: US)
  Receive Date: 20240603
  Receipt Date: 20240603
  Transmission Date: 20240716
  Serious: No
  Sender: FDA-Public Use
  Company Number: US-AZURITY PHARMACEUTICALS, INC.-US-2024ARB000031

PATIENT
  Age: 37 Year
  Sex: Male

DRUGS (2)
  1. TESTOSTERONE CYPIONATE [Suspect]
     Active Substance: TESTOSTERONE CYPIONATE
     Indication: Acromegaly
     Dosage: 100 MG
     Route: 065
  2. TESTOSTERONE CYPIONATE [Suspect]
     Active Substance: TESTOSTERONE CYPIONATE
     Indication: Gigantism

REACTIONS (3)
  - Product dose omission issue [Unknown]
  - Product prescribing issue [Unknown]
  - Liquid product physical issue [Unknown]
